FAERS Safety Report 12713284 (Version 1)
Quarter: 2016Q3

REPORT INFORMATION
  Report Type: Spontaneous
  Country: US (occurrence: US)
  Receive Date: 20160902
  Receipt Date: 20160902
  Transmission Date: 20161109
  Serious: Yes (Other)
  Sender: FDA-Public Use
  Company Number: US-AMGEN-USASP2016116421

PATIENT

DRUGS (11)
  1. FOLINIC ACID [Concomitant]
     Active Substance: LEUCOVORIN
     Dosage: UNK
     Dates: start: 201505
  2. GEMZAR [Concomitant]
     Active Substance: GEMCITABINE HYDROCHLORIDE
     Dosage: UNK
     Dates: start: 201302
  3. AMERICAN GINSENG [Concomitant]
     Dosage: UNK
  4. OXALIPLATIN. [Concomitant]
     Active Substance: OXALIPLATIN
     Dosage: UNK
     Dates: start: 201505
  5. NEULASTA [Suspect]
     Active Substance: PEGFILGRASTIM
     Indication: NEUTROPENIA
     Dosage: UNK
     Route: 065
  6. GEMCITABINE [Concomitant]
     Active Substance: GEMCITABINE\GEMCITABINE HYDROCHLORIDE
     Dosage: UNK
     Dates: start: 201208, end: 201210
  7. FLUOROURACIL 5 FU [Concomitant]
     Active Substance: FLUOROURACIL
     Dosage: UNK UNK, Q2WK
     Dates: start: 201510
  8. CAPECITABINE. [Concomitant]
     Active Substance: CAPECITABINE
     Dosage: UNK
     Dates: start: 201208, end: 201212
  9. FLUOROURACIL 5 FU [Concomitant]
     Active Substance: FLUOROURACIL
     Dosage: UNK
     Dates: start: 201505
  10. IRINOTECAN [Concomitant]
     Active Substance: IRINOTECAN
     Dosage: UNK
     Dates: start: 201505
  11. DOCETAXEL. [Concomitant]
     Active Substance: DOCETAXEL
     Dosage: UNK
     Dates: start: 201208, end: 201212

REACTIONS (6)
  - Fatigue [Unknown]
  - Haematocrit abnormal [Unknown]
  - Neuropathy peripheral [Unknown]
  - Neoplasm recurrence [Unknown]
  - Metastases to lung [Unknown]
  - Haemoglobin abnormal [Unknown]

NARRATIVE: CASE EVENT DATE: 2015
